FAERS Safety Report 7392940-9 (Version None)
Quarter: 2011Q1

REPORT INFORMATION
  Report Type: 
  Country: None (occurrence: None)
  Receive Date: 20110330
  Receipt Date: 20110330
  Transmission Date: 20110831
  Serious: Yes (Hospitalization)
  Sender: FDA-Public Use
  Company Number: None

PATIENT
  Sex: Female
  Weight: 65.9984 kg

DRUGS (22)
  1. TOVIAZ [Suspect]
     Indication: HYPERTONIC BLADDER
     Dosage: 4MG. DAILY P.O.
     Route: 048
     Dates: start: 20110202
  2. TOVIAZ [Suspect]
     Indication: HYPERTONIC BLADDER
     Dosage: 4MG. DAILY P.O.
     Route: 048
     Dates: start: 20110111
  3. VITAMIN D [Concomitant]
  4. OXYCODONE/ACETAMINOPHEN [Concomitant]
  5. ADVAIR DISKUS 100/50 [Concomitant]
  6. CITALOPRAM HYDROBROMIDE [Concomitant]
  7. NITROSTAT [Concomitant]
  8. OMEPRAZOLE [Concomitant]
  9. PREDNISONE [Concomitant]
  10. AZATHIOPRINE [Concomitant]
  11. PLAVIX [Concomitant]
  12. GABAPENTIN [Concomitant]
  13. ASPIRIN [Concomitant]
  14. FOSAMAX [Concomitant]
  15. LIPITOR [Concomitant]
  16. LEVOTHYROXINE [Concomitant]
  17. TOPAMAX [Concomitant]
  18. METOPROLOL TARTRATE [Concomitant]
  19. ISOSORBIDE DINITRATE [Concomitant]
  20. LISINOPRIL [Concomitant]
  21. TRAMADOL [Concomitant]
  22. CYCLOBENZAPRINE [Concomitant]

REACTIONS (7)
  - FATIGUE [None]
  - CHEST PAIN [None]
  - NAUSEA [None]
  - PALPITATIONS [None]
  - HYPOAESTHESIA [None]
  - DYSPNOEA [None]
  - HYPERHIDROSIS [None]
